FAERS Safety Report 14016164 (Version 1)
Quarter: 2017Q3

REPORT INFORMATION
  Report Type: Spontaneous
  Country: JP (occurrence: JP)
  Receive Date: 20170927
  Receipt Date: 20170927
  Transmission Date: 20171128
  Serious: Yes (Other)
  Sender: FDA-Public Use
  Company Number: JP-PFIZER INC-2017337187

PATIENT
  Age: 60 Year
  Sex: Female
  Weight: 57.4 kg

DRUGS (5)
  1. FOLIC ACID. [Concomitant]
     Active Substance: FOLIC ACID
  2. PACLITAXEL. [Suspect]
     Active Substance: PACLITAXEL
     Indication: POSTOPERATIVE CARE
     Dosage: 280 MG, 1X/DAY
     Route: 042
     Dates: start: 20170707
  3. IRON [Concomitant]
     Active Substance: IRON
  4. CARBOPLATIN. [Suspect]
     Active Substance: CARBOPLATIN
     Indication: POSTOPERATIVE CARE
     Dosage: 600 MG, 1X/DAY
     Route: 042
     Dates: start: 20170707
  5. MAGNESIUM OXIDE. [Concomitant]
     Active Substance: MAGNESIUM OXIDE

REACTIONS (6)
  - Toxic skin eruption [Unknown]
  - Erythema [Recovering/Resolving]
  - Rash [Recovered/Resolved]
  - Nausea [Unknown]
  - Eosinophil percentage increased [Recovering/Resolving]
  - White blood cell count decreased [Recovering/Resolving]

NARRATIVE: CASE EVENT DATE: 20170714
